FAERS Safety Report 5925850-1 (Version None)
Quarter: 2008Q4

REPORT INFORMATION
  Report Type: 
  Country: None (occurrence: None)
  Receive Date: 20081021
  Receipt Date: 20060817
  Transmission Date: 20090506
  Serious: Yes (Death, Hospitalization, Other)
  Sender: FDA-Public Use
  Company Number: US-PFIZER INC-2005107321

PATIENT
  Sex: Male
  Weight: 83.9 kg

DRUGS (4)
  1. NEURONTIN [Suspect]
     Indication: BIPOLAR DISORDER
     Dates: start: 19990801, end: 20030413
  2. NEURONTIN [Suspect]
     Indication: PAIN
  3. LAMICTAL [Suspect]
     Indication: BIPOLAR DISORDER
     Dosage: DAILY DOSE:250MG
     Dates: end: 20030413
  4. WELLBUTRIN [Concomitant]

REACTIONS (8)
  - ANXIETY [None]
  - COMPLETED SUICIDE [None]
  - DRUG INEFFECTIVE FOR UNAPPROVED INDICATION [None]
  - DRUG TOXICITY [None]
  - HAEMORRHAGE [None]
  - MAJOR DEPRESSION [None]
  - SUICIDAL IDEATION [None]
  - SUICIDE ATTEMPT [None]
